FAERS Safety Report 23653478 (Version 2)
Quarter: 2024Q1

REPORT INFORMATION
  Report Type: Spontaneous
  Country: ES (occurrence: ES)
  Receive Date: 20240320
  Receipt Date: 20240328
  Transmission Date: 20240410
  Serious: Yes (Other)
  Sender: FDA-Public Use
  Company Number: None

PATIENT
  Age: 11 Year
  Sex: Male
  Weight: 42 kg

DRUGS (1)
  1. NIMENRIX [Suspect]
     Active Substance: CLOSTRIDIUM TETANI TOXOID ANTIGEN (FORMALDEHYDE INACTIVATED)\MENINGOCOCCAL POLYSACCHARIDE VACCINE, G
     Indication: Pneumococcal immunisation
     Dosage: DOSE 2, SINGLE
     Route: 030
     Dates: start: 20240214, end: 20240214

REACTIONS (7)
  - Vaccination site reaction [Recovering/Resolving]
  - Vaccination site cellulitis [Recovering/Resolving]
  - Vaccination site inflammation [Recovering/Resolving]
  - Vaccination site pain [Recovering/Resolving]
  - Blister [Recovering/Resolving]
  - Vaccination site induration [Recovering/Resolving]
  - Vaccination site erythema [Recovering/Resolving]

NARRATIVE: CASE EVENT DATE: 20240216
